FAERS Safety Report 11720917 (Version 1)
Quarter: 2015Q4

REPORT INFORMATION
  Report Type: Spontaneous
  Country: US (occurrence: US)
  Receive Date: 20151110
  Receipt Date: 20151110
  Transmission Date: 20160304
  Serious: No
  Sender: FDA-Public Use
  Company Number: US-SA-2015SA139816

PATIENT
  Age: 44 Year
  Sex: Male

DRUGS (2)
  1. ALIROCUMAB PREFILLED PEN [Concomitant]
     Dates: start: 20150909, end: 20150909
  2. PRALUENT [Suspect]
     Active Substance: ALIROCUMAB
     Dosage: ROUTE: INJECTION
     Dates: start: 20150909, end: 20150909

REACTIONS (2)
  - Dizziness [Recovering/Resolving]
  - Hangover [Recovering/Resolving]

NARRATIVE: CASE EVENT DATE: 20150909
